FAERS Safety Report 8134140-0 (Version None)
Quarter: 2012Q1

REPORT INFORMATION
  Report Type: 
  Country: None (occurrence: None)
  Receive Date: 20120213
  Receipt Date: 20120213
  Transmission Date: 20120608
  Serious: Yes (Death)
  Sender: FDA-Public Use
  Company Number: None

PATIENT
  Age: 51 Year
  Sex: Male
  Weight: 83.0083 kg

DRUGS (1)
  1. BENDAMUSTINE 120 MG/M2 [Suspect]
     Indication: SMALL CELL LUNG CANCER STAGE UNSPECIFIED
     Dosage: 234 MG/1+2DAYSOF21DAYCYCL
     Dates: start: 20111228, end: 20111229

REACTIONS (7)
  - GENERAL PHYSICAL HEALTH DETERIORATION [None]
  - THROMBOCYTOPENIA [None]
  - REFUSAL OF TREATMENT BY PATIENT [None]
  - HEPATIC ENZYME INCREASED [None]
  - DISEASE PROGRESSION [None]
  - PNEUMONIA [None]
  - DYSPNOEA [None]
